FAERS Safety Report 8406028-9 (Version None)
Quarter: 2012Q2

REPORT INFORMATION
  Report Type: 
  Country: None (occurrence: None)
  Receive Date: 20120604
  Receipt Date: 20120523
  Transmission Date: 20120825
  Serious: No
  Sender: FDA-Public Use
  Company Number: US-PFIZER INC-2012129919

PATIENT
  Sex: Female

DRUGS (1)
  1. MOTRIN IB [Suspect]
     Dosage: 1-2 TABLETS, EVERY 4-6 HOURS AS NEEDED
     Route: 048

REACTIONS (2)
  - PRODUCT PACKAGING ISSUE [None]
  - DRUG INEFFECTIVE [None]
